FAERS Safety Report 16501968 (Version 2)
Quarter: 2019Q3

REPORT INFORMATION
  Report Type: Spontaneous
  Country: US (occurrence: US)
  Receive Date: 20190701
  Receipt Date: 20190709
  Transmission Date: 20191004
  Serious: No
  Sender: FDA-Public Use
  Company Number: US-CELGENEUS-USA-20190608134

PATIENT
  Age: 43 Year
  Sex: Female

DRUGS (3)
  1. OTEZLA [Suspect]
     Active Substance: APREMILAST
     Indication: PSORIATIC ARTHROPATHY
     Dosage: 60 MILLIGRAM
     Route: 048
     Dates: start: 20190614
  2. OTEZLA [Suspect]
     Active Substance: APREMILAST
     Indication: PSORIASIS
  3. OCREVUS [Concomitant]
     Active Substance: OCRELIZUMAB
     Indication: MULTIPLE SCLEROSIS
     Route: 050
     Dates: start: 2018

REACTIONS (6)
  - Muscle spasms [Unknown]
  - Headache [Unknown]
  - Cold sweat [Unknown]
  - Fatigue [Unknown]
  - Nasopharyngitis [Unknown]
  - Palpitations [Unknown]

NARRATIVE: CASE EVENT DATE: 20190617
